FAERS Safety Report 24650967 (Version 2)
Quarter: 2025Q1

REPORT INFORMATION
  Report Type: Spontaneous
  Country: JP (occurrence: JP)
  Receive Date: 20241122
  Receipt Date: 20250313
  Transmission Date: 20250408
  Serious: Yes (Life-Threatening, Hospitalization, Other)
  Sender: ALK-ABELLO
  Company Number: JP-ALK-ABELLO A/S-2024AA003101

PATIENT

DRUGS (7)
  1. MITICURE [Suspect]
     Active Substance: DERMATOPHAGOIDES FARINAE\DERMATOPHAGOIDES PTERONYSSINUS
     Indication: Rhinitis allergic
     Route: 060
     Dates: start: 20240404, end: 20240410
  2. MITICURE [Suspect]
     Active Substance: DERMATOPHAGOIDES FARINAE\DERMATOPHAGOIDES PTERONYSSINUS
     Route: 060
     Dates: start: 20240411, end: 20240730
  3. CRYPTOMERIA JAPONICA POLLEN [Suspect]
     Active Substance: CRYPTOMERIA JAPONICA POLLEN
     Indication: Seasonal allergy
     Route: 060
     Dates: start: 20240725, end: 20240730
  4. IBUPROFEN PICONOL [Suspect]
     Active Substance: IBUPROFEN PICONOL
     Indication: Product used for unknown indication
     Route: 061
  5. ZINC [Concomitant]
     Active Substance: ZINC
     Indication: Hypozincaemia
     Route: 048
     Dates: start: 2019
  6. Voalla [Concomitant]
     Route: 061
  7. GLYCOSAMINOGLYCANS [Concomitant]
     Active Substance: GLYCOSAMINOGLYCANS
     Route: 061

REACTIONS (3)
  - Anaphylactic reaction [Recovered/Resolved]
  - Fatigue [Unknown]
  - Oral pruritus [Recovered/Resolved]

NARRATIVE: CASE EVENT DATE: 20240404
